FAERS Safety Report 5651909-2 (Version None)
Quarter: 2008Q1

REPORT INFORMATION
  Report Type: 
  Country: None (occurrence: None)
  Receive Date: 20080131
  Receipt Date: 20071116
  Transmission Date: 20080703
  Serious: No
  Sender: FDA-Public Use
  Company Number: US200711004413

PATIENT
  Age: 68 Year
  Sex: Male

DRUGS (3)
  1. BYETTA [Suspect]
     Indication: DIABETES MELLITUS
     Dosage: 5 UG, 2/D, SUBCUTANEOUS ; 5 UG, EACH EVENING, SUBCUTANEOUS
     Route: 058
     Dates: start: 20070101, end: 20071001
  2. BYETTA [Suspect]
     Indication: DIABETES MELLITUS
     Dosage: 5 UG, 2/D, SUBCUTANEOUS ; 5 UG, EACH EVENING, SUBCUTANEOUS
     Route: 058
     Dates: start: 20071001
  3. MIRALAX [Concomitant]

REACTIONS (3)
  - NAUSEA [None]
  - POLYPECTOMY [None]
  - VOMITING [None]
